FAERS Safety Report 16117065 (Version 1)
Quarter: 2019Q1

REPORT INFORMATION
  Report Type: Spontaneous
  Country: US (occurrence: US)
  Receive Date: 20190326
  Receipt Date: 20190326
  Transmission Date: 20190418
  Serious: Yes (Other)
  Sender: FDA-Public Use
  Company Number: US-PFIZER INC-2019033708

PATIENT
  Age: 2 Month
  Sex: Male
  Weight: 4.7 kg

DRUGS (2)
  1. RAPAMUNE [Suspect]
     Active Substance: SIROLIMUS
     Indication: ANGIOSARCOMA
     Dosage: 0.2 ML, 2X/DAY (12 HOUR APART TWO TIMES A DAY 9 AM AND 9 PM)
     Dates: start: 20190113
  2. BACTRIM [Concomitant]
     Active Substance: SULFAMETHOXAZOLE\TRIMETHOPRIM
     Indication: PNEUMOCYSTIS JIROVECII PNEUMONIA
     Dosage: UNK UNK, 2X/DAY

REACTIONS (4)
  - Wound complication [Unknown]
  - Product use in unapproved indication [Unknown]
  - Wound [Unknown]
  - Wound infection [Unknown]
